FAERS Safety Report 12862695 (Version 1)
Quarter: 2016Q4

REPORT INFORMATION
  Report Type: Spontaneous
  Country: US (occurrence: US)
  Receive Date: 20161019
  Receipt Date: 20161019
  Transmission Date: 20170207
  Serious: No
  Sender: FDA-Public Use
  Company Number: US-ASTELLAS-2015US044031

PATIENT
  Age: 62 Year
  Sex: Female

DRUGS (24)
  1. MYCAMINE [Suspect]
     Active Substance: MICAFUNGIN SODIUM
     Indication: SEPSIS
     Dosage: UNK UNK, UNKNOWN FREQ.
     Route: 042
     Dates: start: 20151024, end: 20151027
  2. MYCAMINE [Suspect]
     Active Substance: MICAFUNGIN SODIUM
     Indication: ACIDOSIS
  3. MYCAMINE [Suspect]
     Active Substance: MICAFUNGIN SODIUM
     Indication: PNEUMONIA
  4. MYCAMINE [Suspect]
     Active Substance: MICAFUNGIN SODIUM
     Indication: VITAMIN B COMPLEX DEFICIENCY
  5. MYCAMINE [Suspect]
     Active Substance: MICAFUNGIN SODIUM
     Indication: OSTEOPOROSIS
  6. MYCAMINE [Suspect]
     Active Substance: MICAFUNGIN SODIUM
     Indication: SEPSIS
  7. MYCAMINE [Suspect]
     Active Substance: MICAFUNGIN SODIUM
     Indication: PLEURAL EFFUSION
  8. MYCAMINE [Suspect]
     Active Substance: MICAFUNGIN SODIUM
     Indication: ACUTE KIDNEY INJURY
  9. MYCAMINE [Suspect]
     Active Substance: MICAFUNGIN SODIUM
     Indication: GASTROOESOPHAGEAL REFLUX DISEASE
  10. MYCAMINE [Suspect]
     Active Substance: MICAFUNGIN SODIUM
     Indication: BENIGN NEOPLASM
  11. MYCAMINE [Suspect]
     Active Substance: MICAFUNGIN SODIUM
     Indication: STEROID THERAPY
  12. MYCAMINE [Suspect]
     Active Substance: MICAFUNGIN SODIUM
     Indication: COAGULOPATHY
  13. MYCAMINE [Suspect]
     Active Substance: MICAFUNGIN SODIUM
     Indication: IRON DEFICIENCY ANAEMIA
  14. MYCAMINE [Suspect]
     Active Substance: MICAFUNGIN SODIUM
     Indication: RHEUMATOID ARTHRITIS
  15. MYCAMINE [Suspect]
     Active Substance: MICAFUNGIN SODIUM
     Indication: TREATMENT NONCOMPLIANCE
  16. MYCAMINE [Suspect]
     Active Substance: MICAFUNGIN SODIUM
     Indication: IMMUNISATION
  17. MYCAMINE [Suspect]
     Active Substance: MICAFUNGIN SODIUM
     Indication: PNEUMOTHORAX
  18. MYCAMINE [Suspect]
     Active Substance: MICAFUNGIN SODIUM
     Indication: PEPTIC ULCER
  19. MYCAMINE [Suspect]
     Active Substance: MICAFUNGIN SODIUM
     Indication: OSTEOARTHRITIS
  20. MYCAMINE [Suspect]
     Active Substance: MICAFUNGIN SODIUM
     Indication: ACUTE RESPIRATORY FAILURE
  21. MYCAMINE [Suspect]
     Active Substance: MICAFUNGIN SODIUM
     Indication: TYPE 2 DIABETES MELLITUS
  22. MYCAMINE [Suspect]
     Active Substance: MICAFUNGIN SODIUM
     Indication: MALNUTRITION
  23. MYCAMINE [Suspect]
     Active Substance: MICAFUNGIN SODIUM
     Indication: ATRIAL FIBRILLATION
  24. MYCAMINE [Suspect]
     Active Substance: MICAFUNGIN SODIUM
     Indication: ESSENTIAL HYPERTENSION

REACTIONS (1)
  - Off label use [Unknown]

NARRATIVE: CASE EVENT DATE: 20151024
